FAERS Safety Report 6671095-X (Version None)
Quarter: 2010Q2

REPORT INFORMATION
  Report Type: 
  Country: None (occurrence: None)
  Receive Date: 20100407
  Receipt Date: 20100318
  Transmission Date: 20101027
  Serious: Yes (Other)
  Sender: FDA-Public Use
  Company Number: PHHY2010US17191

PATIENT
  Age: 73 Year
  Sex: Female

DRUGS (1)
  1. TERBINAFINE [Suspect]
     Indication: TINEA CAPITIS
     Dosage: UNK

REACTIONS (6)
  - DRUG INEFFECTIVE [None]
  - FINGER AMPUTATION [None]
  - NAIL DYSTROPHY [None]
  - NAIL OPERATION [None]
  - NEOPLASM MALIGNANT [None]
  - SOFT TISSUE INJURY [None]
